FAERS Safety Report 7673666-0 (Version None)
Quarter: 2011Q3

REPORT INFORMATION
  Report Type: 
  Country: None (occurrence: None)
  Receive Date: 20110810
  Receipt Date: 20110801
  Transmission Date: 20111222
  Serious: Yes (Hospitalization)
  Sender: FDA-Public Use
  Company Number: US-US-EMD SERONO, INC.-7074673

PATIENT
  Sex: Male
  Weight: 103 kg

DRUGS (4)
  1. REBIF [Suspect]
  2. LISINOPRIL [Concomitant]
     Indication: HYPERTENSION
  3. REBIF [Suspect]
     Route: 058
  4. REBIF [Suspect]
     Indication: MULTIPLE SCLEROSIS
     Route: 058
     Dates: start: 20090724

REACTIONS (11)
  - TACHYCARDIA [None]
  - MYALGIA [None]
  - MULTIPLE SCLEROSIS RELAPSE [None]
  - CHEST PAIN [None]
  - NAUSEA [None]
  - MALAISE [None]
  - DRY MOUTH [None]
  - FATIGUE [None]
  - ARTHRALGIA [None]
  - DYSGEUSIA [None]
  - HEADACHE [None]
